FAERS Safety Report 9524018 (Version 1)
Quarter: 2013Q1

REPORT INFORMATION
  Report Type: Spontaneous
  Country: US (occurrence: None)
  Receive Date: 20130305
  Receipt Date: 20130305
  Transmission Date: 20140127
  Serious: Yes (Hospitalization)
  Sender: FDA-Public Use
  Company Number: 163-21880-12032548

PATIENT
  Age: 72 Year
  Sex: Male

DRUGS (10)
  1. REVLIMID (LENALIDOMIDE) (25 MILLIGRAM,CAPSULES) [Suspect]
     Indication: PLASMA CELL MYELOMA
     Route: 048
     Dates: start: 20110317
  2. CENTRUM SILVER (CENTRUM SILVER) [Concomitant]
  3. DIOVAN HCT (CO-DIOVAN) [Concomitant]
  4. ALLOPURINOL(ALLOPURINOL) [Concomitant]
  5. FINASTERIDE (FINASTERIDE) [Concomitant]
  6. SIMVASTATIN (SIMVASTATIN) [Concomitant]
  7. OMEPRAZOLE (OMEPRAZOLE) [Concomitant]
  8. ASPIR-81 (ACETYLSALICYLIC ACID) [Concomitant]
  9. BYSTOLIC (NEBIVOLOL HYDROCHLORIDE) [Concomitant]
  10. VALACYCLOVIR (ACICLOVIR) [Concomitant]

REACTIONS (1)
  - Pulmonary thrombosis [None]
